FAERS Safety Report 22211457 (Version 2)
Quarter: 2023Q2

REPORT INFORMATION
  Report Type: Spontaneous
  Country: JP (occurrence: JP)
  Receive Date: 20230414
  Receipt Date: 20230505
  Transmission Date: 20230722
  Serious: Yes (Hospitalization)
  Sender: FDA-Public Use
  Company Number: JP-MYLANLABS-2023M1037293

PATIENT

DRUGS (3)
  1. AMLODIPINE BESYLATE [Suspect]
     Active Substance: AMLODIPINE BESYLATE
     Indication: Gestational hypertension
     Dosage: UNK
     Route: 064
  2. ASPIRIN [Suspect]
     Active Substance: ASPIRIN
     Indication: Prophylaxis
     Dosage: UNK
     Route: 064
  3. ASPIRIN [Suspect]
     Active Substance: ASPIRIN
     Indication: Gestational hypertension

REACTIONS (4)
  - Hospitalisation [Unknown]
  - Apgar score low [Unknown]
  - Low birth weight baby [Unknown]
  - Foetal exposure during pregnancy [Unknown]
